FAERS Safety Report 6304205-4 (Version None)
Quarter: 2009Q3

REPORT INFORMATION
  Report Type: 
  Country: None (occurrence: None)
  Receive Date: 20090811
  Receipt Date: 20090803
  Transmission Date: 20100115
  Serious: Yes (Other)
  Sender: FDA-Public Use
  Company Number: SE-TEVA-204862ISR

PATIENT
  Age: 55 Year
  Sex: Female

DRUGS (2)
  1. ALENDRONIC ACID [Suspect]
  2. ERGOCALCIFEROL [Concomitant]

REACTIONS (1)
  - FEMUR FRACTURE [None]
